FAERS Safety Report 7656528-4 (Version None)
Quarter: 2011Q3

REPORT INFORMATION
  Report Type: 
  Country: None (occurrence: None)
  Receive Date: 20110804
  Receipt Date: 20101022
  Transmission Date: 20111222
  Serious: No
  Sender: FDA-Public Use
  Company Number: US-BAUSCH-2010BL005982

PATIENT
  Age: 73 Year
  Sex: Male

DRUGS (4)
  1. ALLEGRA [Concomitant]
     Indication: MULTIPLE ALLERGIES
     Route: 048
  2. OPCON-A [Suspect]
     Indication: EYE ALLERGY
     Route: 047
     Dates: start: 20101015, end: 20101017
  3. EYE WASH [Concomitant]
     Indication: EYE IRRIGATION
     Route: 047
  4. ARTIFICIAL TEARS LUBRICANT EYE DROPS PF [Concomitant]
     Indication: DRY EYE
     Route: 047

REACTIONS (3)
  - EYE PAIN [None]
  - EYE PRURITUS [None]
  - EYE IRRITATION [None]
